FAERS Safety Report 6887153-0 (Version None)
Quarter: 2010Q3

REPORT INFORMATION
  Report Type: 
  Country: None (occurrence: None)
  Receive Date: 20100730
  Receipt Date: 20100112
  Transmission Date: 20110219
  Serious: Yes (Other)
  Sender: FDA-Public Use
  Company Number: CO-PFIZER INC-2009315541

PATIENT
  Age: 10 Year
  Sex: Female
  Weight: 25 kg

DRUGS (3)
  1. GENOTROPIN [Suspect]
     Indication: BODY HEIGHT BELOW NORMAL
     Dosage: 1 MG, 1X/DAY
     Dates: start: 20091017
  2. ACETAMINOPHEN [Concomitant]
     Dosage: UNK
  3. DOLEX [Concomitant]
     Dosage: 500 MG, AS NEEDED

REACTIONS (15)
  - AMNESIA [None]
  - ASTHENIA [None]
  - BLISTER [None]
  - COLD SWEAT [None]
  - DECREASED APPETITE [None]
  - DIZZINESS [None]
  - EDUCATIONAL PROBLEM [None]
  - HEADACHE [None]
  - INFECTION [None]
  - INFLAMMATION [None]
  - NECK MASS [None]
  - PYREXIA [None]
  - SOMNOLENCE [None]
  - TONSILLITIS [None]
  - WEIGHT DECREASED [None]
